FAERS Safety Report 10580168 (Version 1)
Quarter: 2014Q4

REPORT INFORMATION
  Report Type: Spontaneous
  Country: US (occurrence: US)
  Receive Date: 20141112
  Receipt Date: 20141112
  Transmission Date: 20150529
  Serious: Yes (Hospitalization)
  Sender: FDA-Public Use
  Company Number: PHHY2014US144595

PATIENT
  Age: 77 Year
  Sex: Male

DRUGS (2)
  1. WARFARIN [Suspect]
     Active Substance: WARFARIN
     Indication: PRODUCT USED FOR UNKNOWN INDICATION
     Route: 065
  2. PREDNISONE. [Suspect]
     Active Substance: PREDNISONE
     Indication: IMMUNOSUPPRESSION
     Route: 065

REACTIONS (6)
  - Papule [Unknown]
  - Pigmentation disorder [Unknown]
  - Skin necrosis [Recovered/Resolved]
  - Purpura [Unknown]
  - Herpes simplex [Recovered/Resolved]
  - Skin plaque [Recovered/Resolved]
